FAERS Safety Report 24655232 (Version 1)
Quarter: 2024Q4

REPORT INFORMATION
  Report Type: Spontaneous
  Country: US (occurrence: US)
  Receive Date: 20241123
  Receipt Date: 20241123
  Transmission Date: 20250114
  Serious: No
  Sender: JOHNSON AND JOHNSON
  Company Number: US-JNJFOC-20241124622

PATIENT
  Sex: Male

DRUGS (1)
  1. BALVERSA [Suspect]
     Active Substance: ERDAFITINIB
     Indication: Transitional cell carcinoma metastatic
     Route: 048

REACTIONS (4)
  - Eye disorder [Recovering/Resolving]
  - Nail disorder [Recovering/Resolving]
  - Fatigue [Recovering/Resolving]
  - Hyperphosphataemia [Recovering/Resolving]
